FAERS Safety Report 8613615-1 (Version None)
Quarter: 2012Q3

REPORT INFORMATION
  Report Type: 
  Country: None (occurrence: None)
  Receive Date: 20120823
  Receipt Date: 20120809
  Transmission Date: 20120928
  Serious: Yes (Hospitalization, Other)
  Sender: FDA-Public Use
  Company Number: US-009507513-2011SP012082

PATIENT

DRUGS (6)
  1. MIDRIN [Concomitant]
     Dosage: UNK UNK, PRN
     Dates: start: 19970101
  2. NUVARING [Suspect]
     Indication: CONTRACEPTION
     Dates: start: 20050701, end: 20100316
  3. ALBUTEROL [Concomitant]
     Dosage: UNK UNK, PRN
     Dates: start: 19970101
  4. TRIAZOLAM [Concomitant]
  5. PERCOCET [Concomitant]
     Indication: FIBROMYALGIA
     Dosage: 10-325-4-6 X/DAY
     Dates: start: 20010101, end: 20100101
  6. LYRICA [Concomitant]
     Indication: FIBROMYALGIA
     Dosage: 225 MG, BID
     Dates: start: 20090101, end: 20100101

REACTIONS (15)
  - UPPER RESPIRATORY TRACT INFECTION [None]
  - ALOPECIA [None]
  - POST-TRAUMATIC STRESS DISORDER [None]
  - PELVIC PAIN [None]
  - ROAD TRAFFIC ACCIDENT [None]
  - HEADACHE [None]
  - DEEP VEIN THROMBOSIS [None]
  - LARYNGITIS [None]
  - CEREBRAL HAEMORRHAGE [None]
  - SUBSTANCE USE [None]
  - FACIAL BONES FRACTURE [None]
  - LACERATION [None]
  - DRUG ABUSE [None]
  - AFFECTIVE DISORDER [None]
  - DYSPAREUNIA [None]
